FAERS Safety Report 4532194-1 (Version None)
Quarter: 2004Q4

REPORT INFORMATION
  Report Type: 
  Country: None (occurrence: None)
  Receive Date: 20041217
  Receipt Date: 20041207
  Transmission Date: 20050328
  Serious: Yes (Hospitalization)
  Sender: FDA-Public Use
  Company Number: 2004110584

PATIENT
  Sex: Male

DRUGS (5)
  1. SULFASALAZINE [Suspect]
     Indication: ANKYLOSING SPONDYLITIS
     Dosage: 500 MG, ORAL
     Route: 048
     Dates: start: 19970101, end: 20000101
  2. CARVEDILOL [Concomitant]
  3. LORATADINE [Concomitant]
  4. ASASANTIN (ACETYLSALICYLIC ACID, DIPYRIDAMOLE) [Concomitant]
  5. DIAZEPAM [Concomitant]

REACTIONS (1)
  - PULMONARY FIBROSIS [None]
